FAERS Safety Report 5839593-6 (Version None)
Quarter: 2008Q3

REPORT INFORMATION
  Report Type: 
  Country: None (occurrence: None)
  Receive Date: 20080811
  Receipt Date: 20080714
  Transmission Date: 20090109
  Serious: No
  Sender: FDA-Public Use
  Company Number: A0737505A

PATIENT
  Sex: Female

DRUGS (4)
  1. TREXIMET [Suspect]
     Indication: MIGRAINE
     Route: 048
  2. LAMICTAL [Suspect]
     Route: 048
  3. WELLBUTRIN [Suspect]
     Route: 048
  4. XANAX [Suspect]
     Route: 048

REACTIONS (2)
  - DROOLING [None]
  - MUSCULAR WEAKNESS [None]
